FAERS Safety Report 7401395-7 (Version None)
Quarter: 2011Q2

REPORT INFORMATION
  Report Type: 
  Country: None (occurrence: None)
  Receive Date: 20110407
  Receipt Date: 20110330
  Transmission Date: 20111010
  Serious: Yes (Hospitalization)
  Sender: FDA-Public Use
  Company Number: JP-AMGEN-JPNCT2011014638

PATIENT
  Age: 68 Year
  Sex: Male
  Weight: 64 kg

DRUGS (8)
  1. FLUOROURACIL [Suspect]
     Indication: COLORECTAL CANCER
     Route: 040
     Dates: start: 20100824, end: 20110104
  2. PANITUMUMAB [Suspect]
     Dosage: 6 MG, Q2WK
     Dates: start: 20101221
  3. ASPIRIN [Concomitant]
     Route: 048
  4. PANITUMUMAB [Suspect]
     Indication: COLORECTAL CANCER
     Dosage: 6 MG, Q2WK
     Dates: start: 20100712, end: 20101119
  5. OXALIPLATIN [Suspect]
     Indication: COLORECTAL CANCER
     Route: 041
     Dates: start: 20100824, end: 20110104
  6. ANPLAG [Concomitant]
     Route: 048
  7. LOXONIN TABLETS [Suspect]
     Route: 065
  8. CALCIUM LEVOFOLINATE [Concomitant]
     Indication: COLORECTAL CANCER
     Route: 041
     Dates: start: 20100824, end: 20110104

REACTIONS (3)
  - GASTRIC ULCER [None]
  - PARONYCHIA [None]
  - DERMATITIS ACNEIFORM [None]
